FAERS Safety Report 15662991 (Version 2)
Quarter: 2019Q1

REPORT INFORMATION
  Report Type: Spontaneous
  Country: US (occurrence: US)
  Receive Date: 20181127
  Receipt Date: 20190211
  Transmission Date: 20190417
  Serious: Yes (Other)
  Sender: FDA-Public Use
  Company Number: US-SA-2018SA321574

PATIENT
  Age: 34 Year
  Sex: Female
  Weight: 96.6 kg

DRUGS (5)
  1. ELLENCE [Concomitant]
     Active Substance: EPIRUBICIN HYDROCHLORIDE
     Dosage: UNK
     Route: 065
  2. TAXOTERE [Suspect]
     Active Substance: DOCETAXEL
     Indication: BREAST CANCER FEMALE
     Dosage: 100 MG, Q3W
     Route: 042
     Dates: start: 20070312, end: 20070312
  3. 5-FLUOROURACIL [FLUOROURACIL] [Concomitant]
     Active Substance: FLUOROURACIL
     Dosage: UNK
     Route: 065
  4. NEOSAR [Concomitant]
     Active Substance: CYCLOPHOSPHAMIDE
     Dosage: UNK
     Route: 065
  5. TAXOTERE [Suspect]
     Active Substance: DOCETAXEL
     Dosage: 100 MG, Q3W
     Route: 042
     Dates: start: 20070424, end: 20070424

REACTIONS (1)
  - Alopecia [Recovering/Resolving]
